FAERS Safety Report 8121744-4 (Version None)
Quarter: 2012Q1

REPORT INFORMATION
  Report Type: 
  Country: None (occurrence: None)
  Receive Date: 20120207
  Receipt Date: 20120207
  Transmission Date: 20120608
  Serious: No
  Sender: FDA-Public Use
  Company Number: None

PATIENT

DRUGS (2)
  1. SIMVASTATIN [Suspect]
     Indication: BLOOD CHOLESTEROL INCREASED
     Dosage: 10 MG 1 / DAY
     Dates: start: 20110801, end: 20120101
  2. SIMVASTATIN [Suspect]
     Indication: BLOOD PRESSURE INCREASED
     Dosage: 10 MG 1 / DAY
     Dates: start: 20110801, end: 20120101

REACTIONS (7)
  - MYALGIA [None]
  - BACK PAIN [None]
  - PAIN IN EXTREMITY [None]
  - FATIGUE [None]
  - ASTHENIA [None]
  - MIDDLE INSOMNIA [None]
  - MUSCULOSKELETAL PAIN [None]
